FAERS Safety Report 8642107 (Version 5)
Quarter: 2013Q4

REPORT INFORMATION
  Report Type: Spontaneous
  Country: US (occurrence: US)
  Receive Date: 20120628
  Receipt Date: 20131011
  Transmission Date: 20140711
  Serious: No
  Sender: FDA-Public Use
  Company Number: US-ASTRAZENECA-2012SE41592

PATIENT
  Age: 41 Year
  Sex: Female

DRUGS (26)
  1. NEXIUM [Suspect]
     Indication: GASTROOESOPHAGEAL REFLUX DISEASE
     Dosage: TWICE DAILY
     Route: 048
  2. NEXIUM [Suspect]
     Indication: GASTRITIS
     Dosage: TWICE DAILY
     Route: 048
  3. NEXIUM [Suspect]
     Indication: HIATUS HERNIA
     Dosage: TWICE DAILY
     Route: 048
  4. NEXIUM [Suspect]
     Indication: GASTROOESOPHAGEAL REFLUX DISEASE
     Dosage: GENERIC
     Route: 065
  5. NEXIUM [Suspect]
     Indication: GASTRITIS
     Dosage: GENERIC
     Route: 065
  6. NEXIUM [Suspect]
     Indication: HIATUS HERNIA
     Dosage: GENERIC
     Route: 065
  7. NEXIUM [Suspect]
     Indication: GASTROOESOPHAGEAL REFLUX DISEASE
     Route: 048
  8. NEXIUM [Suspect]
     Indication: GASTRITIS
     Route: 048
  9. NEXIUM [Suspect]
     Indication: HIATUS HERNIA
     Route: 048
  10. NEXIUM [Suspect]
     Indication: GASTROOESOPHAGEAL REFLUX DISEASE
     Route: 048
     Dates: start: 2004
  11. NEXIUM [Suspect]
     Indication: GASTRITIS
     Route: 048
     Dates: start: 2004
  12. NEXIUM [Suspect]
     Indication: HIATUS HERNIA
     Route: 048
     Dates: start: 2004
  13. NEXIUM [Suspect]
     Indication: GASTROOESOPHAGEAL REFLUX DISEASE
     Route: 048
     Dates: start: 2012
  14. NEXIUM [Suspect]
     Indication: GASTRITIS
     Route: 048
     Dates: start: 2012
  15. NEXIUM [Suspect]
     Indication: HIATUS HERNIA
     Route: 048
     Dates: start: 2012
  16. NEXIUM [Suspect]
     Indication: GASTROOESOPHAGEAL REFLUX DISEASE
     Route: 048
     Dates: start: 20130923
  17. NEXIUM [Suspect]
     Indication: GASTRITIS
     Route: 048
     Dates: start: 20130923
  18. NEXIUM [Suspect]
     Indication: HIATUS HERNIA
     Route: 048
     Dates: start: 20130923
  19. NEXIUM [Suspect]
     Indication: GASTROOESOPHAGEAL REFLUX DISEASE
     Route: 048
     Dates: start: 20130925
  20. NEXIUM [Suspect]
     Indication: GASTRITIS
     Route: 048
     Dates: start: 20130925
  21. NEXIUM [Suspect]
     Indication: HIATUS HERNIA
     Route: 048
     Dates: start: 20130925
  22. TOPROL XL [Suspect]
     Route: 048
  23. PRILOSEC [Suspect]
     Indication: GASTROOESOPHAGEAL REFLUX DISEASE
     Route: 048
  24. PRILOSEC [Suspect]
     Indication: GASTROOESOPHAGEAL REFLUX DISEASE
     Dosage: GENERIC
     Route: 065
  25. DEXILANT [Suspect]
     Route: 065
  26. REGLAN [Concomitant]
     Indication: GASTROOESOPHAGEAL REFLUX DISEASE

REACTIONS (13)
  - Gastrooesophageal reflux disease [Unknown]
  - Gastroenteritis viral [Unknown]
  - Blood pressure abnormal [Unknown]
  - Chest discomfort [Unknown]
  - Clostridium difficile colitis [Unknown]
  - Malaise [Unknown]
  - Diverticulitis [Unknown]
  - Diarrhoea [Unknown]
  - Headache [Unknown]
  - Sinusitis [Unknown]
  - Therapeutic response unexpected [Unknown]
  - Intentional drug misuse [Unknown]
  - Drug dose omission [Unknown]
